FAERS Safety Report 9136241 (Version 1)
Quarter: 2013Q1

REPORT INFORMATION
  Report Type: Spontaneous
  Country: GB (occurrence: GB)
  Receive Date: 20130304
  Receipt Date: 20130304
  Transmission Date: 20140127
  Serious: Yes (Other)
  Sender: FDA-Public Use
  Company Number: GB-GLAXOSMITHKLINE-B0869425A

PATIENT
  Age: 40 Year
  Sex: Female
  Weight: 69.85 kg

DRUGS (3)
  1. LAMOTRIGINE [Suspect]
     Indication: EPILEPSY
     Dosage: 75MG PER DAY
     Route: 048
     Dates: start: 200911
  2. PROPRANOLOL [Suspect]
     Indication: PANIC ATTACK
     Dates: start: 200811, end: 201105
  3. CIPRALEX [Concomitant]
     Indication: PANIC ATTACK
     Dates: start: 200811, end: 201209

REACTIONS (3)
  - Acne pustular [Not Recovered/Not Resolved]
  - Weight increased [Not Recovered/Not Resolved]
  - Mood swings [Not Recovered/Not Resolved]
